FAERS Safety Report 8267921-3 (Version None)
Quarter: 2012Q2

REPORT INFORMATION
  Report Type: 
  Country: None (occurrence: None)
  Receive Date: 20120409
  Receipt Date: 20120327
  Transmission Date: 20120825
  Serious: Yes (Hospitalization, Other)
  Sender: FDA-Public Use
  Company Number: PHHY2012JP029299

PATIENT
  Age: 82 Year
  Sex: Male

DRUGS (4)
  1. EPADEL [Concomitant]
     Route: 048
  2. RASILEZ [Suspect]
     Route: 048
  3. WARFARIN SODIUM [Concomitant]
     Route: 048
  4. DILTIAZEM HYDROCHLORIDE [Concomitant]

REACTIONS (2)
  - NEOPLASM MALIGNANT [None]
  - ABDOMINAL MASS [None]
